FAERS Safety Report 8302433-X (Version None)
Quarter: 2012Q2

REPORT INFORMATION
  Report Type: 
  Country: None (occurrence: None)
  Receive Date: 20120420
  Receipt Date: 20120402
  Transmission Date: 20120825
  Serious: Yes (Other)
  Sender: FDA-Public Use
  Company Number: CHPA2012US005774

PATIENT
  Sex: Female

DRUGS (1)
  1. GAS-X CHEWABLE TABLETS UNKNOWN [Suspect]
     Dosage: UNK, UNK

REACTIONS (5)
  - MALAISE [None]
  - NAUSEA [None]
  - CHOLELITHIASIS [None]
  - DIZZINESS [None]
  - PAIN [None]
